FAERS Safety Report 7401442-2 (Version None)
Quarter: 2011Q2

REPORT INFORMATION
  Report Type: 
  Country: None (occurrence: None)
  Receive Date: 20110407
  Receipt Date: 20110208
  Transmission Date: 20111010
  Serious: No
  Sender: FDA-Public Use
  Company Number: A0912505A

PATIENT
  Age: 76 Year
  Sex: Male

DRUGS (8)
  1. ENTACAPONE [Concomitant]
  2. ROPINIROLE [Suspect]
     Indication: PARKINSON'S DISEASE
     Dosage: 6MG TWICE PER DAY
     Route: 048
     Dates: start: 20110120
  3. GALANTAMINE HYDROBROMIDE [Concomitant]
  4. SINEMET [Concomitant]
  5. MEMANTINE [Concomitant]
  6. NEURONTIN [Concomitant]
  7. BUSPIRONE HCL [Concomitant]
  8. REQUIP XL [Suspect]
     Indication: PARKINSON'S DISEASE
     Dosage: 6MG PER DAY
     Route: 048
     Dates: start: 20090201

REACTIONS (1)
  - FALL [None]
